FAERS Safety Report 25974992 (Version 1)
Quarter: 2025Q4

REPORT INFORMATION
  Report Type: Report from Study
  Country: US (occurrence: US)
  Receive Date: 20251029
  Receipt Date: 20251029
  Transmission Date: 20260118
  Serious: Yes (Other)
  Sender: NOVARTIS
  Company Number: US-002147023-NVSC2025US055158

PATIENT
  Sex: Female

DRUGS (1)
  1. KESIMPTA [Suspect]
     Active Substance: OFATUMUMAB
     Indication: Multiple sclerosis
     Dosage: 20 MG, QMO
     Route: 065
     Dates: start: 20241227

REACTIONS (11)
  - Multiple sclerosis [Unknown]
  - Gait disturbance [Unknown]
  - Fatigue [Unknown]
  - Back pain [Unknown]
  - Muscle spasticity [Unknown]
  - Asthenia [Unknown]
  - Mental impairment [Unknown]
  - Drug ineffective [Unknown]
  - Pruritus [Unknown]
  - Weight increased [Not Recovered/Not Resolved]
  - Product availability issue [Unknown]
